FAERS Safety Report 10479720 (Version 1)
Quarter: 2014Q3

REPORT INFORMATION
  Report Type: Report from Study
  Country: US (occurrence: US)
  Receive Date: 20140927
  Receipt Date: 20140927
  Transmission Date: 20150326
  Serious: Yes (Other)
  Sender: FDA-Public Use
  Company Number: US-ALEXION PHARMACEUTICALS INC-A201002336

PATIENT
  Age: 36 Year
  Sex: Female

DRUGS (3)
  1. ALDACTONE [Concomitant]
     Active Substance: SPIRONOLACTONE
     Indication: POLYURIA
     Dosage: UNK
  2. IMMUNOGLOBULIN                     /00025201/ [Concomitant]
     Active Substance: HUMAN IMMUNOGLOBULIN G
     Indication: PRODUCT USED FOR UNKNOWN INDICATION
     Dosage: UNK
     Route: 042
  3. SOLIRIS [Suspect]
     Active Substance: ECULIZUMAB
     Indication: PAROXYSMAL NOCTURNAL HAEMOGLOBINURIA
     Dosage: UNK
     Route: 042

REACTIONS (31)
  - Malaise [Unknown]
  - Seasonal affective disorder [Unknown]
  - Nausea [Unknown]
  - Weight increased [Unknown]
  - Cyst [Unknown]
  - Haemoglobinuria [Unknown]
  - Blood urine present [Unknown]
  - Jaundice [Unknown]
  - Alcohol use [Unknown]
  - Insomnia [Unknown]
  - Nasal congestion [Unknown]
  - Urinary tract infection [Unknown]
  - Fear [Unknown]
  - Fatigue [Recovering/Resolving]
  - Neutropenia [Unknown]
  - Quality of life decreased [Unknown]
  - Anxiety [Unknown]
  - Dysarthria [Unknown]
  - Hypotension [Unknown]
  - Headache [Unknown]
  - Pyrexia [Unknown]
  - Biopsy bone marrow [Unknown]
  - Emotional distress [Unknown]
  - Bed rest [Unknown]
  - Agitation [Unknown]
  - Anger [Unknown]
  - Abdominal pain [Unknown]
  - Infection [Unknown]
  - Vomiting [Unknown]
  - Dyspnoea [Recovering/Resolving]
  - Distractibility [Unknown]

NARRATIVE: CASE EVENT DATE: 20110606
